FAERS Safety Report 15580251 (Version 1)
Quarter: 2018Q4

REPORT INFORMATION
  Report Type: Spontaneous
  Country: US (occurrence: US)
  Receive Date: 20181102
  Receipt Date: 20181102
  Transmission Date: 20190205
  Serious: No
  Sender: FDA-Public Use
  Company Number: US-STRONGBRIDGE BIOPHARMA-2018-STR-000368

PATIENT
  Age: 58 Year
  Sex: Female

DRUGS (1)
  1. KEVEYIS [Suspect]
     Active Substance: DICHLORPHENAMIDE
     Indication: MYOTONIA CONGENITA
     Dosage: 50 MG BID
     Route: 048
     Dates: start: 20181006, end: 20181021

REACTIONS (4)
  - Abdominal pain [Recovered/Resolved]
  - Paraesthesia [Recovered/Resolved]
  - Diarrhoea [Recovered/Resolved]
  - Irritable bowel syndrome [Recovered/Resolved]

NARRATIVE: CASE EVENT DATE: 20181016
